FAERS Safety Report 6613389-X (Version None)
Quarter: 2010Q1

REPORT INFORMATION
  Report Type: 
  Country: None (occurrence: None)
  Receive Date: 20100304
  Receipt Date: 20100225
  Transmission Date: 20100710
  Serious: Yes (Disabling)
  Sender: FDA-Public Use
  Company Number: FI-SANOFI-AVENTIS-2010SA011090

PATIENT
  Sex: Female

DRUGS (6)
  1. ARAVA [Suspect]
     Route: 048
     Dates: start: 20091101, end: 20100119
  2. DIPENTUM [Concomitant]
     Dosage: 6 CAPSULES PER DAY
     Route: 048
     Dates: start: 20020101
  3. CORTISONE [Concomitant]
     Indication: DRUG USE FOR UNKNOWN INDICATION
     Route: 048
     Dates: start: 20080101
  4. CALCIUM [Concomitant]
     Indication: DRUG USE FOR UNKNOWN INDICATION
     Route: 048
  5. MULTI-VITAMINS [Concomitant]
     Indication: DRUG USE FOR UNKNOWN INDICATION
     Route: 048
  6. FISH OIL [Concomitant]
     Indication: DRUG USE FOR UNKNOWN INDICATION
     Route: 048

REACTIONS (3)
  - ASTHENIA [None]
  - FATIGUE [None]
  - PYREXIA [None]
